FAERS Safety Report 5123893-1 (Version None)
Quarter: 2006Q4

REPORT INFORMATION
  Report Type: 
  Country: None (occurrence: None)
  Receive Date: 20061010
  Receipt Date: 20060808
  Transmission Date: 20070319
  Serious: Yes (Hospitalization)
  Sender: FDA-Public Use
  Company Number: JP-BRISTOL-MYERS SQUIBB COMPANY-13471198

PATIENT
  Age: 49 Year
  Sex: Female

DRUGS (5)
  1. TAXOL [Suspect]
     Indication: OVARIAN CANCER
     Route: 042
     Dates: start: 20040101, end: 20060705
  2. PARAPLATIN [Suspect]
     Indication: OVARIAN CANCER
     Route: 042
     Dates: start: 20040101, end: 20060705
  3. GRANISETRON HCL [Concomitant]
     Route: 042
     Dates: start: 20040101, end: 20060705
  4. DEXAMETHASONE SODIUM PHOSPHATE [Concomitant]
     Route: 042
     Dates: start: 20040101, end: 20060705
  5. RANITIDINE HCL [Concomitant]
     Route: 042
     Dates: start: 20040101, end: 20060705

REACTIONS (1)
  - INTESTINAL OBSTRUCTION [None]
